FAERS Safety Report 10022919 (Version 1)
Quarter: 2014Q1

REPORT INFORMATION
  Report Type: Spontaneous
  Country: US (occurrence: US)
  Receive Date: 20140319
  Receipt Date: 20140319
  Transmission Date: 20141002
  Serious: No
  Sender: FDA-Public Use
  Company Number: US-SANOFI-AVENTIS-2013SA050236

PATIENT
  Age: 56 Year
  Sex: Male

DRUGS (2)
  1. NASACORT AQ [Suspect]
     Indication: HYPERSENSITIVITY
     Dosage: DOSE: 2 SPRAYS DAILY?TAKEN FROM: ABOUT FIVE YEARS AGO
     Route: 065
  2. NASACORT AQ [Suspect]
     Indication: HYPERSENSITIVITY
     Dosage: DOSE: 2 SPRAYS DAILY?TAKEN FROM: ABOUT FIVE YEARS AGO
     Route: 065

REACTIONS (1)
  - Product quality issue [Unknown]
